FAERS Safety Report 25981628 (Version 1)
Quarter: 2025Q4

REPORT INFORMATION
  Report Type: Spontaneous
  Country: JP (occurrence: JP)
  Receive Date: 20251031
  Receipt Date: 20251031
  Transmission Date: 20260118
  Serious: Yes (Death, Life-Threatening, Hospitalization, Other)
  Sender: MERCK SHARP & DOHME LLC
  Company Number: JP-MSD-M2024-22061

PATIENT
  Age: 70 Year
  Sex: Female

DRUGS (5)
  1. KEYTRUDA [Suspect]
     Active Substance: PEMBROLIZUMAB
     Indication: Endometrial adenocarcinoma
     Dosage: DOSE DESCRIPTION : 200 MILLIGRAM / DOSE
     Route: 041
     Dates: start: 20220404, end: 20240429
  2. LENVIMA [Suspect]
     Active Substance: LENVATINIB
     Indication: Endometrial adenocarcinoma
     Dosage: DOSE DESCRIPTION : 20 MILLIGRAM, QD?DAILY DOSE : 20 MILLIGRAM?CONCENTRATION: 10 MILLIGRAM?REGIMEN...
     Route: 048
     Dates: start: 20220404, end: 20220418
  3. LENVIMA [Suspect]
     Active Substance: LENVATINIB
     Indication: Endometrial adenocarcinoma
     Dosage: DOSE DESCRIPTION : 14 MILLIGRAM
     Route: 048
     Dates: start: 20220426, end: 20220530
  4. LENVIMA [Suspect]
     Active Substance: LENVATINIB
     Indication: Endometrial adenocarcinoma
     Dosage: DOSE DESCRIPTION : 10 MILLIGRAM
     Route: 048
     Dates: start: 20220614, end: 20220704
  5. LENVIMA [Suspect]
     Active Substance: LENVATINIB
     Indication: Endometrial adenocarcinoma
     Dosage: DOSE DESCRIPTION : 8 MILLIGRAM
     Route: 048
     Dates: start: 20220711

REACTIONS (14)
  - Acute kidney injury [Fatal]
  - Therapy partial responder [Unknown]
  - Dehydration [Unknown]
  - Malignant neoplasm progression [Unknown]
  - Multiple organ dysfunction syndrome [Unknown]
  - Hypothyroidism [Recovered/Resolved]
  - Fatigue [Not Recovered/Not Resolved]
  - Platelet count decreased [Recovered/Resolved]
  - Hypertension [Recovered/Resolved]
  - Thyroiditis [Unknown]
  - Aspartate aminotransferase increased [Recovered/Resolved]
  - Malaise [Not Recovered/Not Resolved]
  - Alanine aminotransferase increased [Recovered/Resolved]
  - Blood lactate dehydrogenase increased [Recovered/Resolved]

NARRATIVE: CASE EVENT DATE: 20220418
